FAERS Safety Report 7841859-5 (Version None)
Quarter: 2011Q4

REPORT INFORMATION
  Report Type: 
  Country: None (occurrence: None)
  Receive Date: 20111018
  Receipt Date: 20111003
  Transmission Date: 20120403
  Serious: Yes (Other)
  Sender: FDA-Public Use
  Company Number: PT-1188300

PATIENT
  Age: 42 Year
  Sex: Female

DRUGS (3)
  1. BSS [Suspect]
     Indication: INTRAOCULAR LENS IMPLANT
     Dosage: INTRAOCULAR, INTRAOCULAR
     Route: 031
     Dates: start: 20100525, end: 20100525
  2. BSS [Suspect]
     Indication: INTRAOCULAR LENS IMPLANT
     Dosage: INTRAOCULAR, INTRAOCULAR
     Route: 031
     Dates: start: 20100525, end: 20100525
  3. BSS [Suspect]

REACTIONS (8)
  - IRIS ATROPHY [None]
  - EYE INJURY [None]
  - IRIS DISORDER [None]
  - PIGMENT DISPERSION SYNDROME [None]
  - PUPILLARY DEFORMITY [None]
  - ANTERIOR CHAMBER CELL [None]
  - CILIARY HYPERAEMIA [None]
  - TOXICITY TO VARIOUS AGENTS [None]
